FAERS Safety Report 4743954-6 (Version None)
Quarter: 2005Q3

REPORT INFORMATION
  Report Type: 
  Country: None (occurrence: None)
  Receive Date: 20050810
  Receipt Date: 20050810
  Transmission Date: 20060218
  Serious: Yes (Other)
  Sender: FDA-Public Use
  Company Number: None

PATIENT
  Age: 70 Year
  Sex: Male

DRUGS (8)
  1. METFORMIN HCL [Suspect]
     Indication: DIABETES MELLITUS NON-INSULIN-DEPENDENT
     Dosage: 4 TAABS DAILY [ 3AAM AND 1PM]
  2. NEXIUM [Concomitant]
  3. ALLEGRA [Concomitant]
  4. GLYBURIDE [Concomitant]
  5. CELEBREX [Concomitant]
  6. TRIAMTERENE AND HYDROCHLOROTHIAZIDE [Concomitant]
  7. LIPITOR [Concomitant]
  8. AVANDIA [Concomitant]

REACTIONS (2)
  - DIABETES MELLITUS INADEQUATE CONTROL [None]
  - PHARMACEUTICAL PRODUCT COMPLAINT [None]
